FAERS Safety Report 10950248 (Version 1)
Quarter: 2015Q1

REPORT INFORMATION
  Report Type: Spontaneous
  Country: IT (occurrence: IT)
  Receive Date: 20150324
  Receipt Date: 20150324
  Transmission Date: 20150721
  Serious: Yes (Other)
  Sender: FDA-Public Use
  Company Number: PHHY2015IT030894

PATIENT
  Age: 27 Year
  Sex: Male

DRUGS (2)
  1. METHYLPREDNISOLONE. [Suspect]
     Active Substance: METHYLPREDNISOLONE
     Indication: RASH
     Dosage: 50 MG, QD
     Route: 065
  2. METHYLPREDNISOLONE. [Suspect]
     Active Substance: METHYLPREDNISOLONE
     Dosage: TAPERED OVER THE FOLLOWING 15 DAYS
     Route: 048

REACTIONS (9)
  - Skin swelling [Recovered/Resolved]
  - Skin mass [Recovered/Resolved]
  - Acne conglobata [Recovered/Resolved]
  - Scab [Recovered/Resolved]
  - Acne fulminans [Recovered/Resolved]
  - Pain of skin [Recovered/Resolved]
  - Arthropathy [Recovered/Resolved]
  - Rash pustular [Recovered/Resolved]
  - Drug ineffective [Unknown]
